FAERS Safety Report 4823766-5 (Version None)
Quarter: 2005Q4

REPORT INFORMATION
  Report Type: 
  Country: None (occurrence: None)
  Receive Date: 20051107
  Receipt Date: 20051021
  Transmission Date: 20060501
  Serious: Yes (Hospitalization)
  Sender: FDA-Public Use
  Company Number: S05-FRA-03152-01

PATIENT
  Age: 32 Year
  Sex: Male
  Weight: 120 kg

DRUGS (8)
  1. SEROPLEX               (ESCITALOPRAM) [Suspect]
     Dosage: 10 MG QD PO
     Route: 048
     Dates: start: 20050101, end: 20050805
  2. INSULIN [Concomitant]
  3. RISPERDAL [Concomitant]
  4. STILNOX (ZOLPIDEM) [Concomitant]
  5. ATHYMIL (MIANSERIN HYDROCHLORIDE) [Concomitant]
  6. LORAZEPAM [Concomitant]
  7. THERALINE (ALIMEMAZINE TARTRATE) [Concomitant]
  8. DIPIPERON (PIPAMPERONE) [Concomitant]

REACTIONS (3)
  - DIABETES MELLITUS INADEQUATE CONTROL [None]
  - HYPERTRIGLYCERIDAEMIA [None]
  - PANCREATITIS ACUTE [None]
